FAERS Safety Report 15916245 (Version 4)
Quarter: 2019Q2

REPORT INFORMATION
  Report Type: Report from Study
  Country: DE (occurrence: DE)
  Receive Date: 20190204
  Receipt Date: 20190430
  Transmission Date: 20190711
  Serious: Yes (Hospitalization)
  Sender: FDA-Public Use
  Company Number: PHHO2017DE012749

PATIENT
  Age: 58 Year
  Sex: Male
  Weight: 82 kg

DRUGS (15)
  1. INUVAIR [Concomitant]
     Active Substance: BECLOMETHASONE DIPROPIONATE\FORMOTEROL FUMARATE
     Indication: CHRONIC OBSTRUCTIVE PULMONARY DISEASE
     Dosage: 100/6, BID
     Route: 055
     Dates: start: 2010
  2. L THYROXIN [Concomitant]
     Active Substance: LEVOTHYROXINE SODIUM
     Indication: HYPOTHYROIDISM
     Dosage: 125 UG, QD
     Route: 048
  3. BLINDED PLACEBO [Suspect]
     Active Substance: INVESTIGATIONAL PRODUCT
     Indication: PSEUDOMONAS INFECTION
  4. MINIRIN [Concomitant]
     Active Substance: DESMOPRESSIN ACETATE
     Indication: DIABETES INSIPIDUS
     Dosage: 40 MG, QD
     Route: 048
     Dates: start: 2011
  5. NOVAMINSULFON [Concomitant]
     Active Substance: METAMIZOLE
     Indication: CHEST PAIN
     Dosage: PRN
     Route: 065
  6. BLINDED TOBRAMYCIN INHALATION POWDER [Suspect]
     Active Substance: UNSPECIFIED INGREDIENT
     Indication: BRONCHIECTASIS
     Dosage: CODE NOT BROKEN
     Route: 055
     Dates: start: 20170816, end: 20170830
  7. BLINDED TOBRAMYCIN INHALATION POWDER [Suspect]
     Active Substance: UNSPECIFIED INGREDIENT
     Indication: PSEUDOMONAS INFECTION
  8. SPIRIVA [Concomitant]
     Active Substance: TIOTROPIUM BROMIDE MONOHYDRATE
     Indication: CHRONIC OBSTRUCTIVE PULMONARY DISEASE
     Dosage: 2.5 MG, QD
     Route: 055
     Dates: start: 2010
  9. SALBUTAMOL [Concomitant]
     Active Substance: ALBUTEROL
     Indication: CHRONIC OBSTRUCTIVE PULMONARY DISEASE
     Dosage: 100 UG, PRN
     Route: 055
     Dates: start: 2010
  10. FORMOLICH [Concomitant]
     Active Substance: FORMOTEROL FUMARATE
     Indication: PRODUCT USED FOR UNKNOWN INDICATION
     Dosage: UNK
     Route: 065
  11. BLINDED PLACEBO [Suspect]
     Active Substance: INVESTIGATIONAL PRODUCT
     Indication: BRONCHIECTASIS
     Dosage: CODE NOT BROKEN
     Route: 055
     Dates: start: 20170816, end: 20170830
  12. BLINDED NO TREATMENT RECEIVED [Suspect]
     Active Substance: INVESTIGATIONAL PRODUCT
     Indication: PSEUDOMONAS INFECTION
  13. ACC [Concomitant]
     Active Substance: ACETYLCYSTEINE
     Indication: BRONCHIECTASIS
     Dosage: 600 MG, QD
     Route: 048
     Dates: start: 2017
  14. BLINDED NO TREATMENT RECEIVED [Suspect]
     Active Substance: INVESTIGATIONAL PRODUCT
     Indication: BRONCHIECTASIS
     Dosage: CODE NOT BROKEN
     Route: 055
     Dates: start: 20170816, end: 20170830
  15. SIMVASTATIN. [Concomitant]
     Active Substance: SIMVASTATIN
     Indication: HYPERCHOLESTEROLAEMIA
     Dosage: 40 MG, QD
     Route: 048
     Dates: start: 2011

REACTIONS (4)
  - Bacterial disease carrier [Unknown]
  - Asthenia [Recovered/Resolved]
  - Chronic obstructive pulmonary disease [Recovered/Resolved]
  - Dyspnoea [Recovered/Resolved]

NARRATIVE: CASE EVENT DATE: 20170903
